FAERS Safety Report 24054843 (Version 4)
Quarter: 2025Q1

REPORT INFORMATION
  Report Type: Spontaneous
  Country: ES (occurrence: ES)
  Receive Date: 20240705
  Receipt Date: 20250226
  Transmission Date: 20250409
  Serious: Yes (Hospitalization)
  Sender: MYLAN
  Company Number: ES-BAXTER-2024BAX018311

PATIENT
  Age: 67 Year
  Sex: Female
  Weight: 69.1 kg

DRUGS (57)
  1. ACETAMINOPHEN [Suspect]
     Active Substance: ACETAMINOPHEN
     Indication: Premedication
  2. ACETAMINOPHEN [Suspect]
     Active Substance: ACETAMINOPHEN
     Dates: start: 20240408, end: 20240408
  3. ACETAMINOPHEN [Suspect]
     Active Substance: ACETAMINOPHEN
     Dates: start: 20240425, end: 20240425
  4. OMEPRAZOLE [Suspect]
     Active Substance: OMEPRAZOLE
     Indication: Product used for unknown indication
  5. ACYCLOVIR [Suspect]
     Active Substance: ACYCLOVIR
     Indication: Product used for unknown indication
  6. ACYCLOVIR [Suspect]
     Active Substance: ACYCLOVIR
     Dates: start: 20240506, end: 20240506
  7. APIXABAN [Suspect]
     Active Substance: APIXABAN
     Indication: Product used for unknown indication
  8. LORAZEPAM [Suspect]
     Active Substance: LORAZEPAM
     Indication: Product used for unknown indication
  9. DOXORUBICIN [Suspect]
     Active Substance: DOXORUBICIN
     Indication: Product used for unknown indication
     Dates: start: 20230301, end: 20230616
  10. RITUXIMAB [Suspect]
     Active Substance: RITUXIMAB
     Indication: Diffuse large B-cell lymphoma stage I
     Dates: start: 20240205, end: 20240205
  11. RITUXIMAB [Suspect]
     Active Substance: RITUXIMAB
     Dates: start: 20240320, end: 20240320
  12. RITUXIMAB [Suspect]
     Active Substance: RITUXIMAB
     Dates: start: 20240423
  13. RITUXIMAB [Suspect]
     Active Substance: RITUXIMAB
     Dates: start: 20240424
  14. DEXCHLORPHENIRAMINE [Suspect]
     Active Substance: DEXCHLORPHENIRAMINE
     Indication: Premedication
     Dates: start: 20240418, end: 20240418
  15. DEXCHLORPHENIRAMINE [Suspect]
     Active Substance: DEXCHLORPHENIRAMINE
  16. ACETAMINOPHEN [Suspect]
     Active Substance: ACETAMINOPHEN
     Indication: Premedication
  17. DEXCHLORPHENIRAMINE [Suspect]
     Active Substance: DEXCHLORPHENIRAMINE
     Indication: Premedication
     Dates: start: 20240408, end: 20240408
  18. DEXCHLORPHENIRAMINE [Suspect]
     Active Substance: DEXCHLORPHENIRAMINE
     Dates: start: 20240408, end: 20240408
  19. DEXCHLORPHENIRAMINE [Suspect]
     Active Substance: DEXCHLORPHENIRAMINE
     Dates: start: 20240418, end: 20240418
  20. DEXCHLORPHENIRAMINE [Suspect]
     Active Substance: DEXCHLORPHENIRAMINE
  21. DEXCHLORPHENIRAMINE [Suspect]
     Active Substance: DEXCHLORPHENIRAMINE
     Dates: start: 20240425, end: 20240425
  22. IFOSFAMIDE [Suspect]
     Active Substance: IFOSFAMIDE
     Indication: Diffuse large B-cell lymphoma stage I
     Dates: start: 20240206, end: 20240222
  23. IFOSFAMIDE [Suspect]
     Active Substance: IFOSFAMIDE
     Dates: start: 20240321, end: 20240322
  24. IFOSFAMIDE [Suspect]
     Active Substance: IFOSFAMIDE
     Dates: start: 20240424, end: 20240425
  25. IFOSFAMIDE [Suspect]
     Active Substance: IFOSFAMIDE
  26. TRIMETHOPRIM [Suspect]
     Active Substance: TRIMETHOPRIM
     Indication: Product used for unknown indication
  27. ETOPOSIDE [Suspect]
     Active Substance: ETOPOSIDE
     Indication: Diffuse large B-cell lymphoma stage I
     Dates: start: 20240205, end: 20240207
  28. ETOPOSIDE [Suspect]
     Active Substance: ETOPOSIDE
     Dates: start: 20240320, end: 20240322
  29. ETOPOSIDE [Suspect]
     Active Substance: ETOPOSIDE
     Dates: start: 20240423, end: 20240425
  30. ETOPOSIDE [Suspect]
     Active Substance: ETOPOSIDE
  31. ETOPOSIDE [Suspect]
     Active Substance: ETOPOSIDE
  32. EPCORITAMAB [Suspect]
     Active Substance: EPCORITAMAB
     Indication: Diffuse large B-cell lymphoma stage I
     Dates: start: 20240207, end: 20240207
  33. EPCORITAMAB [Suspect]
     Active Substance: EPCORITAMAB
     Dates: start: 20240229, end: 20240229
  34. EPCORITAMAB [Suspect]
     Active Substance: EPCORITAMAB
     Dates: start: 20240307, end: 20240307
  35. EPCORITAMAB [Suspect]
     Active Substance: EPCORITAMAB
     Dates: start: 20240314, end: 20240314
  36. EPCORITAMAB [Suspect]
     Active Substance: EPCORITAMAB
     Dates: start: 20240322, end: 20240322
  37. EPCORITAMAB [Suspect]
     Active Substance: EPCORITAMAB
     Dates: start: 20240410, end: 20240410
  38. EPCORITAMAB [Suspect]
     Active Substance: EPCORITAMAB
  39. EPCORITAMAB [Suspect]
     Active Substance: EPCORITAMAB
  40. EPCORITAMAB [Suspect]
     Active Substance: EPCORITAMAB
     Dates: start: 20240503
  41. EPCORITAMAB [Suspect]
     Active Substance: EPCORITAMAB
  42. CARBOPLATIN [Suspect]
     Active Substance: CARBOPLATIN
     Indication: Diffuse large B-cell lymphoma stage I
     Dates: start: 20240206, end: 20240206
  43. CARBOPLATIN [Suspect]
     Active Substance: CARBOPLATIN
     Dates: start: 20240321, end: 20240321
  44. CARBOPLATIN [Suspect]
     Active Substance: CARBOPLATIN
     Dates: start: 20240424
  45. ERGOCALCIFEROL [Suspect]
     Active Substance: ERGOCALCIFEROL
     Indication: Product used for unknown indication
  46. CYCLOPHOSPHAMIDE [Suspect]
     Active Substance: CYCLOPHOSPHAMIDE
     Indication: Product used for unknown indication
     Dates: start: 20230301, end: 20230616
  47. CALCIUM [Suspect]
     Active Substance: CALCIUM
     Indication: Product used for unknown indication
  48. PREGABALIN [Concomitant]
     Active Substance: PREGABALIN
     Indication: Product used for unknown indication
  49. TRAMADOL [Concomitant]
     Active Substance: TRAMADOL
     Indication: Product used for unknown indication
  50. SULFAMETHOXAZOLE [Concomitant]
     Active Substance: SULFAMETHOXAZOLE
     Indication: Product used for unknown indication
  51. METOCLOPRAMIDE [Concomitant]
     Active Substance: METOCLOPRAMIDE
     Indication: Product used for unknown indication
     Dates: start: 20240506, end: 20240509
  52. VITAMIN D [Concomitant]
     Active Substance: VITAMIN D NOS
  53. MAGNESIUM SULFATE [Concomitant]
     Active Substance: MAGNESIUM SULFATE
     Indication: Product used for unknown indication
     Dates: start: 20240506, end: 20240506
  54. PIPERACILLIN [Concomitant]
     Active Substance: PIPERACILLIN
     Indication: Product used for unknown indication
     Dates: start: 20240506, end: 20240509
  55. ONDANSETRON [Concomitant]
     Active Substance: ONDANSETRON
     Indication: Product used for unknown indication
     Dates: start: 20240506, end: 20240509
  56. TAZOBACTAM [Concomitant]
     Active Substance: TAZOBACTAM
     Indication: Product used for unknown indication
     Dates: start: 20240506, end: 20240509
  57. METAMIZOLE [Concomitant]
     Active Substance: METAMIZOLE
     Indication: Product used for unknown indication
     Dates: start: 20240506, end: 20240506

REACTIONS (1)
  - Febrile neutropenia [Recovered/Resolved]

NARRATIVE: CASE EVENT DATE: 20240506
